FAERS Safety Report 9455902 (Version 1)
Quarter: 2013Q3

REPORT INFORMATION
  Report Type: Spontaneous
  Country: AU (occurrence: AU)
  Receive Date: 20130813
  Receipt Date: 20130813
  Transmission Date: 20140515
  Serious: Yes (Death)
  Sender: FDA-Public Use
  Company Number: AU-PFIZER INC-2013225372

PATIENT
  Age: 56 Year
  Sex: Female
  Weight: 78 kg

DRUGS (12)
  1. GENTAMICIN SULFATE [Suspect]
     Indication: PYREXIA
     Dosage: 240 MG, 1X/DAY
     Route: 042
     Dates: start: 19870724, end: 19870917
  2. CYTARABINE [Suspect]
     Indication: ACUTE MYELOID LEUKAEMIA
     Dosage: 11 G, 1X/DAY
     Route: 042
     Dates: start: 19870911, end: 19870915
  3. MITOZANTRONE [Suspect]
     Dosage: 18 MG, 1X/DAY
     Route: 042
     Dates: start: 19870912, end: 19870915
  4. VANCOMYCIN [Suspect]
     Indication: PYREXIA
     Dosage: 2 G, 1X/DAY
     Route: 042
     Dates: start: 19870728, end: 19870918
  5. CEFTAZIDIME [Suspect]
     Dosage: 3 G, 1X/DAY
     Route: 042
     Dates: start: 19870901, end: 19870918
  6. LORAZEPAM [Suspect]
  7. ALLOPURINOL [Suspect]
     Dosage: 300 MG, 1X/DAY
     Route: 048
     Dates: end: 19870918
  8. GLYCERYL TRINITRATE [Suspect]
     Route: 061
  9. MAXOLON [Suspect]
     Dosage: 10 MG, 1X/DAY
     Route: 042
     Dates: start: 19870911, end: 19870918
  10. PANADEINE FORTE [Suspect]
     Dosage: 2 DF, 1X/DAY
     Route: 048
     Dates: start: 19870913, end: 19870914
  11. PREDNISOLONE [Suspect]
     Dosage: UNK
     Route: 047
     Dates: end: 19870916
  12. STEMETIL [Suspect]
     Dosage: 25 MG, SINGLE
     Route: 042
     Dates: start: 19870914, end: 19870914

REACTIONS (1)
  - Renal failure acute [Fatal]
